FAERS Safety Report 8593512-0 (Version None)
Quarter: 2012Q3

REPORT INFORMATION
  Report Type: 
  Country: None (occurrence: None)
  Receive Date: 20120814
  Receipt Date: 20120730
  Transmission Date: 20120928
  Serious: Yes (Death, Hospitalization)
  Sender: FDA-Public Use
  Company Number: GB-WATSON-2012-13763

PATIENT
  Age: 19 Year
  Sex: Male

DRUGS (2)
  1. NEFOPAM [Suspect]
     Indication: PRODUCT USED FOR UNKNOWN INDICATION
     Dosage: 60 X 30 MG
     Route: 048
  2. DICLOFENAC SODIUM [Suspect]
     Indication: PRODUCT USED FOR UNKNOWN INDICATION
     Dosage: 14 X 50 MG
     Route: 048

REACTIONS (5)
  - CARDIO-RESPIRATORY ARREST [None]
  - OVERDOSE [None]
  - CONVULSION [None]
  - UNRESPONSIVE TO STIMULI [None]
  - CYANOSIS [None]
